FAERS Safety Report 9858238 (Version 1)
Quarter: 2014Q1

REPORT INFORMATION
  Report Type: Spontaneous
  Country: US (occurrence: US)
  Receive Date: 20140131
  Receipt Date: 20140131
  Transmission Date: 20141002
  Serious: No
  Sender: FDA-Public Use
  Company Number: US-JNJFOC-20140113202

PATIENT
  Age: 22 Year
  Sex: Female
  Weight: 102.06 kg

DRUGS (1)
  1. STELARA [Suspect]
     Indication: PSORIASIS
     Route: 058
     Dates: start: 20130904

REACTIONS (1)
  - Hepatic enzyme increased [Not Recovered/Not Resolved]
